FAERS Safety Report 5160509-2 (Version None)
Quarter: 2006Q4

REPORT INFORMATION
  Report Type: 
  Country: None (occurrence: None)
  Receive Date: 20061129
  Receipt Date: 20060515
  Transmission Date: 20070319
  Serious: Yes (Death)
  Sender: FDA-Public Use
  Company Number: US-BOEHRINGER INGELHEIM GMBH, GERMANY-2006-DE-02467GD

PATIENT
  Age: 35 Year
  Sex: Female

DRUGS (8)
  1. PREDNISONE TAB [Suspect]
     Indication: NON-HODGKIN'S LYMPHOMA
  2. CYCLOPHOSPHAMIDE [Suspect]
     Indication: NON-HODGKIN'S LYMPHOMA
  3. VIRAMUNE [Suspect]
     Indication: HIV INFECTION
  4. ADRIAMYCIN PFS [Suspect]
     Indication: NON-HODGKIN'S LYMPHOMA
  5. VINCRISTINE [Suspect]
     Indication: NON-HODGKIN'S LYMPHOMA
  6. CRIXIVAN [Suspect]
     Indication: HIV INFECTION
  7. NORVIR [Suspect]
     Indication: HIV INFECTION
  8. EPIVIR [Suspect]
     Indication: HIV INFECTION

REACTIONS (10)
  - BLOOD LACTATE DEHYDROGENASE INCREASED [None]
  - DRUG TOLERANCE DECREASED [None]
  - EYELID PTOSIS [None]
  - FAILURE TO THRIVE [None]
  - LYMPHOMA [None]
  - PERFORMANCE STATUS DECREASED [None]
  - PNEUMOCYSTIS JIROVECI PNEUMONIA [None]
  - PYREXIA [None]
  - RESPIRATORY DISTRESS [None]
  - RESPIRATORY FAILURE [None]
